FAERS Safety Report 10232676 (Version 1)
Quarter: 2014Q2

REPORT INFORMATION
  Report Type: Spontaneous
  Country: LT (occurrence: LT)
  Receive Date: 20140612
  Receipt Date: 20140612
  Transmission Date: 20141212
  Serious: Yes (Death, Other)
  Sender: FDA-Public Use
  Company Number: PHHY2014LT071411

PATIENT
  Age: 48 Year
  Sex: Male

DRUGS (4)
  1. CICLOSPORIN [Suspect]
     Indication: IMMUNOSUPPRESSION
     Dosage: 250 MG, PERDAY
  2. MYCOPHENOLATE MOFETIL [Suspect]
     Indication: IMMUNOSUPPRESSION
     Dosage: 3 G, PERDAY
     Dates: start: 20091028, end: 201009
  3. PREDNISOLONE [Suspect]
     Indication: IMMUNOSUPPRESSION
     Dosage: 15 MG, PERDAY
  4. RIFAMPICIN [Interacting]
     Indication: TUBERCULOSIS
     Dosage: 0.6 G, PERDAY

REACTIONS (7)
  - Cardiac failure [Fatal]
  - Respiratory failure [Fatal]
  - Myocardial infarction [Fatal]
  - Obliterative bronchiolitis [Unknown]
  - Lung transplant rejection [Unknown]
  - Tuberculosis [Unknown]
  - Drug interaction [Unknown]
